FAERS Safety Report 6505995-8 (Version None)
Quarter: 2009Q4

REPORT INFORMATION
  Report Type: 
  Country: None (occurrence: None)
  Receive Date: 20091218
  Receipt Date: 20091208
  Transmission Date: 20100525
  Serious: Yes (Hospitalization)
  Sender: FDA-Public Use
  Company Number: US-ABBOTT-09P-163-0613658-00

PATIENT
  Sex: Female
  Weight: 43.13 kg

DRUGS (3)
  1. HUMIRA [Suspect]
     Indication: CROHN'S DISEASE
     Dates: start: 20090825, end: 20091202
  2. FLAGYL [Concomitant]
     Indication: CROHN'S DISEASE
  3. MESALAMINE [Concomitant]
     Indication: CROHN'S DISEASE

REACTIONS (5)
  - CONTUSION [None]
  - FALL [None]
  - HYPOTENSION [None]
  - SKIN EXFOLIATION [None]
  - WEIGHT DECREASED [None]
